FAERS Safety Report 8582830-8 (Version None)
Quarter: 2012Q3

REPORT INFORMATION
  Report Type: 
  Country: None (occurrence: None)
  Receive Date: 20120809
  Receipt Date: 20120718
  Transmission Date: 20120928
  Serious: Yes (Death, Hospitalization)
  Sender: FDA-Public Use
  Company Number: CN-ROCHE-1098386

PATIENT
  Age: 73 Year
  Sex: Male

DRUGS (1)
  1. ACTIVASE [Suspect]
     Indication: LACUNAR INFARCTION
     Dates: start: 20100824, end: 20100824

REACTIONS (5)
  - GINGIVAL BLEEDING [None]
  - EPISTAXIS [None]
  - COMA [None]
  - PYREXIA [None]
  - MULTI-ORGAN FAILURE [None]
